FAERS Safety Report 8394885-4 (Version None)
Quarter: 2012Q2

REPORT INFORMATION
  Report Type: 
  Country: None (occurrence: None)
  Receive Date: 20120530
  Receipt Date: 20120518
  Transmission Date: 20120825
  Serious: Yes (Hospitalization, Other)
  Sender: FDA-Public Use
  Company Number: DE-ELI_LILLY_AND_COMPANY-DE201203006307

PATIENT
  Age: 72 Year
  Sex: Female

DRUGS (7)
  1. VENLAFAXINE [Concomitant]
     Dosage: 37.5 MG, UNK
  2. VENLAFAXINE HYDROCHLORIDE [Concomitant]
     Dosage: 37.5 DF, UNK
  3. OLANZAPINE [Suspect]
     Indication: SCHIZOPHRENIA
     Dosage: 405 MG, MONTHLY (1/M)
     Route: 030
     Dates: start: 20100701
  4. NEBIVOLOL HCL [Concomitant]
     Dosage: 5 MG, UNK
  5. MADOPAR [Concomitant]
     Dosage: UNK, EACH EVENING
  6. TIAPRIDEX [Concomitant]
     Dosage: UNK, EACH EVENING
  7. RESTEX [Concomitant]
     Dosage: 100 MG, UNK

REACTIONS (17)
  - HYPERTENSION [None]
  - DISTURBANCE IN ATTENTION [None]
  - FEELING ABNORMAL [None]
  - DIZZINESS [None]
  - INJECTION SITE MASS [None]
  - CONFUSIONAL STATE [None]
  - DELIRIUM [None]
  - DISORIENTATION [None]
  - DYSGEUSIA [None]
  - DYSARTHRIA [None]
  - ASTHENIA [None]
  - TACHYCARDIA [None]
  - ATAXIA [None]
  - LOSS OF CONSCIOUSNESS [None]
  - RESTLESSNESS [None]
  - INJECTION SITE HAEMORRHAGE [None]
  - AGITATION [None]
